FAERS Safety Report 5834426-6 (Version None)
Quarter: 2008Q3

REPORT INFORMATION
  Report Type: 
  Country: None (occurrence: None)
  Receive Date: 20080805
  Receipt Date: 20080724
  Transmission Date: 20090109
  Serious: Yes (Other)
  Sender: FDA-Public Use
  Company Number: SE-PFIZER INC-2008060133

PATIENT
  Age: 55 Year
  Sex: Female

DRUGS (2)
  1. NORVASC [Suspect]
     Indication: HYPERTENSION
     Dosage: DAILY DOSE:10MG
     Route: 048
  2. COZAAR [Concomitant]
     Indication: HYPERTENSION
     Dosage: TEXT:LOSARTAN 5MG/HYDROCHLOROTHIAZIDE 12 MG
     Route: 048

REACTIONS (4)
  - INTERVERTEBRAL DISC COMPRESSION [None]
  - JOINT EFFUSION [None]
  - MUSCLE FATIGUE [None]
  - OSTEOPOROSIS [None]
